FAERS Safety Report 22621959 (Version 10)
Quarter: 2023Q4

REPORT INFORMATION
  Report Type: Spontaneous
  Country: US (occurrence: US)
  Receive Date: 20230620
  Receipt Date: 20231207
  Transmission Date: 20240110
  Serious: No
  Sender: FDA-Public Use
  Company Number: US-ALXN-A202308001

PATIENT
  Age: 24 Year
  Sex: Female

DRUGS (3)
  1. STRENSIQ [Suspect]
     Active Substance: ASFOTASE ALFA
     Indication: Hypophosphatasia
     Dosage: 2 MG/KG, TIW
     Route: 065
  2. STRENSIQ [Suspect]
     Active Substance: ASFOTASE ALFA
     Dosage: 1 MG/KG, SIX TIMES/WEEK
     Route: 065
  3. STRENSIQ [Suspect]
     Active Substance: ASFOTASE ALFA
     Dosage: 10 MG, SIX TIMES/WEEK
     Route: 065

REACTIONS (24)
  - Nausea [Unknown]
  - Dizziness [Unknown]
  - Muscle tightness [Unknown]
  - Myalgia [Unknown]
  - Anxiety [Unknown]
  - Arthralgia [Unknown]
  - Gait disturbance [Unknown]
  - Muscular weakness [Unknown]
  - Feeling abnormal [Unknown]
  - Asthenia [Unknown]
  - Pain [Unknown]
  - Gait inability [Recovered/Resolved]
  - Musculoskeletal stiffness [Unknown]
  - Fatigue [Unknown]
  - Somnolence [Unknown]
  - Muscle atrophy [Unknown]
  - Injection site induration [Unknown]
  - Injection site atrophy [Unknown]
  - Injection site reaction [Not Recovered/Not Resolved]
  - Injection site erythema [Unknown]
  - Injection site pain [Unknown]
  - Injection site pruritus [Unknown]
  - Injection site swelling [Unknown]
  - Injection site bruising [Unknown]

NARRATIVE: CASE EVENT DATE: 20230401
